FAERS Safety Report 16128042 (Version 1)
Quarter: 2019Q1

REPORT INFORMATION
  Report Type: Spontaneous
  Country: US (occurrence: US)
  Receive Date: 20190225
  Receipt Date: 20190225
  Transmission Date: 20190418
  Serious: Yes (Hospitalization)
  Sender: FDA-Public Use
  Company Number: None

PATIENT
  Sex: Male

DRUGS (1)
  1. COPAXONE [Suspect]
     Active Substance: GLATIRAMER ACETATE
     Indication: MULTIPLE SCLEROSIS
     Route: 058
     Dates: start: 20180118

REACTIONS (6)
  - Speech disorder [None]
  - Gait inability [None]
  - Product dose omission [None]
  - Insurance issue [None]
  - Feeding disorder [None]
  - Cardiac failure congestive [None]
